FAERS Safety Report 22085204 (Version 2)
Quarter: 2023Q1

REPORT INFORMATION
  Report Type: Spontaneous
  Country: SK (occurrence: SK)
  Receive Date: 20230310
  Receipt Date: 20230322
  Transmission Date: 20230417
  Serious: Yes (Hospitalization, Other)
  Sender: FDA-Public Use
  Company Number: SK-PFIZER INC-PV202300018657

PATIENT
  Age: 12 Year
  Sex: Female
  Weight: 21 kg

DRUGS (4)
  1. LORLATINIB [Suspect]
     Active Substance: LORLATINIB
     Indication: Neuroblastoma recurrent
     Dosage: 100 MG/M2, 1X/DAY (CYCLE 28 DAYS) (CYCLE 1)
     Route: 048
     Dates: start: 20230127
  2. LORLATINIB [Suspect]
     Active Substance: LORLATINIB
     Dosage: 100 MG/M2, 1X/DAY (CYCLE 2)
     Route: 048
     Dates: start: 20230222
  3. TOPOTECAN HYDROCHLORIDE [Suspect]
     Active Substance: TOPOTECAN HYDROCHLORIDE
     Indication: Neuroblastoma recurrent
     Dosage: 0.75 MG/M2, 5-DAY CYCLE TOGETHER WITH CYCLOPHOSPHAMIDE (CYCLE 1)
     Dates: start: 20230125
  4. CYCLOPHOSPHAMIDE [Suspect]
     Active Substance: CYCLOPHOSPHAMIDE
     Indication: Neuroblastoma recurrent
     Dosage: 250 MG/M2, 5-DAY CYCLE TOGETHER WITH TOPOTECAN (CYCLE 1)
     Dates: start: 20230125

REACTIONS (5)
  - Myelosuppression [Recovering/Resolving]
  - Appendicitis [Recovered/Resolved]
  - Liver function test increased [Unknown]
  - Blood triglycerides increased [Unknown]
  - Off label use [Unknown]

NARRATIVE: CASE EVENT DATE: 20230127
